FAERS Safety Report 7256569 (Version 2)
Quarter: 2014Q1

REPORT INFORMATION
  Report Type: Spontaneous
  Country: US (occurrence: None)
  Receive Date: 20100113
  Receipt Date: 20140103
  Transmission Date: 20141002
  Serious: Yes (Other)
  Sender: FDA-Public Use
  Company Number: 2010S1000006

PATIENT
  Age: 63 Year
  Sex: Female
  Weight: 64.41 kg

DRUGS (8)
  1. SODIUM PHOSPHATE [Suspect]
     Indication: COLONOSCOPY
     Dosage: 2 IN 24 HOURS ORAL
     Route: 048
     Dates: start: 20041017, end: 20041018
  2. VIOXX [Concomitant]
  3. NEXIUM (ESOMEPRAZOLE MAGNESIUM) [Concomitant]
  4. PREMARIN (ESTROGENS CONJUGATED) [Concomitant]
  5. SYNTHROID [Concomitant]
  6. SYNTHROID [Concomitant]
  7. NORVASC (AMLODIPINE BESILATE) [Concomitant]
  8. IBUPROFEN (IBUPROFEN) [Concomitant]

REACTIONS (8)
  - Injury [None]
  - Renal failure acute [None]
  - Nephrocalcinosis [None]
  - Glomerulosclerosis [None]
  - Renal arteriosclerosis [None]
  - Renal failure chronic [None]
  - Renal transplant [None]
  - Renal tubular necrosis [None]
